FAERS Safety Report 7220008-0 (Version None)
Quarter: 2011Q1

REPORT INFORMATION
  Report Type: 
  Country: None (occurrence: None)
  Receive Date: 20110111
  Receipt Date: 20100120
  Transmission Date: 20110831
  Serious: Yes (Hospitalization)
  Sender: FDA-Public Use
  Company Number: US-PFIZER INC-2010011129

PATIENT
  Sex: Female

DRUGS (1)
  1. TENORMIN [Suspect]
     Dosage: UNK
     Route: 065

REACTIONS (3)
  - JOINT SWELLING [None]
  - ARTHRITIS [None]
  - GAIT DISTURBANCE [None]
